FAERS Safety Report 16220057 (Version 1)
Quarter: 2019Q2

REPORT INFORMATION
  Report Type: Spontaneous
  Country: US (occurrence: US)
  Receive Date: 20190420
  Receipt Date: 20190420
  Transmission Date: 20190711
  Serious: No
  Sender: FDA-Public Use
  Company Number: US-009507513-1903USA010526

PATIENT
  Sex: Female

DRUGS (1)
  1. NEXPLANON [Suspect]
     Active Substance: ETONOGESTREL
     Dosage: 68 MG, A BROKEN NEXPLANON ROD IN HER ARM
     Route: 059
     Dates: start: 201710

REACTIONS (4)
  - Feeling abnormal [Unknown]
  - Device breakage [Not Recovered/Not Resolved]
  - Upper limb fracture [Unknown]
  - Device kink [Not Recovered/Not Resolved]

NARRATIVE: CASE EVENT DATE: 201808
